FAERS Safety Report 10661164 (Version 1)
Quarter: 2014Q4

REPORT INFORMATION
  Report Type: Spontaneous
  Country: US (occurrence: None)
  Receive Date: 20141216
  Receipt Date: 20141216
  Transmission Date: 20150529
  Serious: No
  Sender: FDA-Public Use
  Company Number: None

PATIENT
  Age: 55 Year
  Sex: Female
  Weight: 59.88 kg

DRUGS (3)
  1. DULOXETINE  HCL [Suspect]
     Active Substance: DULOXETINE HYDROCHLORIDE
     Indication: TRIGEMINAL NERVE DISORDER
     Dosage: 3 PILLS
     Route: 048
     Dates: start: 20141204, end: 20141215
  2. DULOXETINE  HCL [Suspect]
     Active Substance: DULOXETINE HYDROCHLORIDE
     Indication: NEURALGIA
     Dosage: 3 PILLS
     Route: 048
     Dates: start: 20141204, end: 20141215
  3. DULOXETINE  HCL [Suspect]
     Active Substance: DULOXETINE HYDROCHLORIDE
     Indication: HEADACHE
     Dosage: 3 PILLS
     Route: 048
     Dates: start: 20141204, end: 20141215

REACTIONS (8)
  - Insomnia [None]
  - Dizziness [None]
  - Product substitution issue [None]
  - Bradyphrenia [None]
  - Abdominal discomfort [None]
  - Headache [None]
  - Feeling abnormal [None]
  - Impaired work ability [None]

NARRATIVE: CASE EVENT DATE: 20141204
